FAERS Safety Report 4850555-8 (Version None)
Quarter: 2005Q4

REPORT INFORMATION
  Report Type: 
  Country: None (occurrence: None)
  Receive Date: 20051208
  Receipt Date: 20051208
  Transmission Date: 20060501
  Serious: Yes (Hospitalization)
  Sender: FDA-Public Use
  Company Number: None

PATIENT
  Age: 72 Year
  Sex: Female

DRUGS (2)
  1. KETEK [Suspect]
  2. ATORVASTATIN [Suspect]

REACTIONS (2)
  - HEPATIC FAILURE [None]
  - RENAL IMPAIRMENT [None]
